FAERS Safety Report 10181929 (Version 2)
Quarter: 2014Q2

REPORT INFORMATION
  Report Type: Report from Study
  Country: JP (occurrence: JP)
  Receive Date: 20140519
  Receipt Date: 20140519
  Transmission Date: 20141212
  Serious: Yes (Other)
  Sender: FDA-Public Use
  Company Number: JP-009507513-2012SP032628

PATIENT
  Age: 50 Year
  Sex: Female
  Weight: 72 kg

DRUGS (12)
  1. RIBAVIRIN [Suspect]
     Indication: HEPATITIS C
     Dosage: 400 MG, BID
     Route: 048
     Dates: start: 20100817, end: 20110206
  2. FERON [Suspect]
     Indication: HEPATITIS C
     Dosage: 6 MILLION IU, QD
     Route: 041
     Dates: start: 20100817, end: 20100913
  3. FERON [Suspect]
     Dosage: 6 MILLION IU, TIW
     Route: 041
     Dates: start: 20100914, end: 20110131
  4. CALONAL [Concomitant]
     Indication: PYREXIA
     Dosage: 400 MG,QD
     Route: 048
     Dates: start: 20100817, end: 20110131
  5. CALONAL [Concomitant]
     Indication: PROPHYLAXIS
  6. HALOSTEN [Concomitant]
     Indication: BIPOLAR I DISORDER
     Dosage: 3 MG, QD
     Route: 048
  7. TASMOLIN (BIPERIDEN) [Concomitant]
     Indication: BIPOLAR I DISORDER
     Dosage: 3 DF, QD
     Route: 048
  8. LITHIUM CARBONATE [Concomitant]
     Indication: BIPOLAR I DISORDER
     Dosage: 1000 MG, QD
     Route: 048
  9. BARNETIL [Concomitant]
     Indication: BIPOLAR I DISORDER
     Dosage: 300 MG, QD
     Route: 048
  10. LEVOTOMIN (LEVOMEPROMAZINE HYDROCHLORIDE) [Concomitant]
     Indication: BIPOLAR I DISORDER
     Dosage: 50 MG, QD
     Route: 048
  11. AMOBAN [Concomitant]
     Indication: BIPOLAR I DISORDER
     Dosage: 7.5 MG, QD
     Route: 048
  12. PURSENID [Concomitant]
     Indication: CONSTIPATION
     Dosage: 2 DF, QD
     Route: 048
     Dates: end: 20110715

REACTIONS (2)
  - Neutrophil count decreased [Recovered/Resolved]
  - Pyrexia [Recovered/Resolved]
